FAERS Safety Report 15258123 (Version 1)
Quarter: 2018Q3

REPORT INFORMATION
  Report Type: Spontaneous
  Country: JP (occurrence: JP)
  Receive Date: 20180809
  Receipt Date: 20180809
  Transmission Date: 20181010
  Serious: Yes (Other)
  Sender: FDA-Public Use
  Company Number: JP-BRISTOL-MYERS SQUIBB COMPANY-BMS-2018-071706

PATIENT
  Age: 6 Decade
  Sex: Female

DRUGS (1)
  1. KENACORT?A [Suspect]
     Active Substance: TRIAMCINOLONE
     Indication: ARTHROPATHY
     Dosage: 20 MG, UNK
     Route: 014
     Dates: start: 201404, end: 201606

REACTIONS (1)
  - Osteonecrosis [Recovered/Resolved]

NARRATIVE: CASE EVENT DATE: 201604
